FAERS Safety Report 16343236 (Version 1)
Quarter: 2019Q2

REPORT INFORMATION
  Report Type: Spontaneous
  Country: GB (occurrence: GB)
  Receive Date: 20190522
  Receipt Date: 20190522
  Transmission Date: 20190711
  Serious: Yes (Other)
  Sender: FDA-Public Use
  Company Number: GB-009507513-1905GBR008770

PATIENT
  Age: 25 Year
  Sex: Female
  Weight: 81 kg

DRUGS (1)
  1. MIRTAZAPINE. [Suspect]
     Active Substance: MIRTAZAPINE
     Dosage: 30 MILLIGRAM
     Route: 048
     Dates: start: 20190417

REACTIONS (2)
  - Hypoaesthesia oral [Unknown]
  - Nausea [Unknown]

NARRATIVE: CASE EVENT DATE: 20190420
